FAERS Safety Report 11234808 (Version 1)
Quarter: 2015Q3

REPORT INFORMATION
  Report Type: Spontaneous
  Country: TR (occurrence: TR)
  Receive Date: 20150702
  Receipt Date: 20150702
  Transmission Date: 20151125
  Serious: Yes (Hospitalization, Other)
  Sender: FDA-Public Use
  Company Number: TR-GLAXOSMITHKLINE-TR2015GSK095070

PATIENT
  Age: 11 Year
  Sex: Female

DRUGS (2)
  1. VALPROIC ACID. [Interacting]
     Active Substance: VALPROIC ACID
     Indication: EPILEPSY
     Dosage: FOR 3 YEARS AND 1 MONTH PRIOR TO PRESENTATION
  2. LAMOTRIGINE. [Suspect]
     Active Substance: LAMOTRIGINE
     Indication: EPILEPSY
     Dosage: UNK

REACTIONS (17)
  - Blepharitis [Recovered/Resolved]
  - Lacrimation increased [Recovered/Resolved]
  - Rash maculo-papular [Recovered/Resolved]
  - Skin lesion [Recovered/Resolved]
  - Lymph node palpable [Recovered/Resolved]
  - Conjunctival hyperaemia [Recovered/Resolved]
  - Pyrexia [Recovered/Resolved]
  - Malaise [Recovered/Resolved]
  - Oral disorder [Recovered/Resolved]
  - Toxic epidermal necrolysis [Recovered/Resolved]
  - Nikolsky^s sign [Recovered/Resolved]
  - Dermatitis bullous [Recovered/Resolved]
  - Purpura [Recovered/Resolved]
  - Keratitis [Recovered/Resolved]
  - Erythema [Recovered/Resolved]
  - Rash [Recovered/Resolved]
  - Drug interaction [Unknown]
